FAERS Safety Report 5952168-3 (Version None)
Quarter: 2008Q4

REPORT INFORMATION
  Report Type: 
  Country: None (occurrence: None)
  Receive Date: 20081113
  Receipt Date: 20080801
  Transmission Date: 20090506
  Serious: No
  Sender: FDA-Public Use
  Company Number: A0740748A

PATIENT
  Age: 47 Year
  Sex: Male

DRUGS (3)
  1. COREG [Suspect]
     Dosage: 12.5MG TWICE PER DAY
     Route: 048
     Dates: start: 20040101
  2. ALTACE [Concomitant]
  3. LANOXIN [Concomitant]

REACTIONS (2)
  - BRADYCARDIA [None]
  - EJECTION FRACTION DECREASED [None]
